FAERS Safety Report 6581126-3 (Version None)
Quarter: 2010Q1

REPORT INFORMATION
  Report Type: 
  Country: None (occurrence: None)
  Receive Date: 20100215
  Receipt Date: 20100209
  Transmission Date: 20100710
  Serious: Yes (Death)
  Sender: FDA-Public Use
  Company Number: PHEH2010US02425

PATIENT

DRUGS (1)
  1. TEKTURNA [Suspect]

REACTIONS (1)
  - BLOOD POTASSIUM INCREASED [None]
